FAERS Safety Report 20877749 (Version 2)
Quarter: 2022Q2

REPORT INFORMATION
  Report Type: Report from Study
  Country: US (occurrence: US)
  Receive Date: 20220526
  Receipt Date: 20220602
  Transmission Date: 20220721
  Serious: Yes (Other)
  Sender: FDA-Public Use
  Company Number: US-JAZZ-2022-US-017323

PATIENT
  Sex: Male

DRUGS (2)
  1. XYWAV [Suspect]
     Active Substance: CALCIUM OXYBATE\MAGNESIUM OXYBATE\POTASSIUM OXYBATE\SODIUM OXYBATE
     Indication: Hypersomnia
     Dosage: 3.75 GRAM, BID
  2. XYWAV [Suspect]
     Active Substance: CALCIUM OXYBATE\MAGNESIUM OXYBATE\POTASSIUM OXYBATE\SODIUM OXYBATE
     Dosage: 3 GRAM, QD
     Route: 048

REACTIONS (10)
  - Blindness [Unknown]
  - Deafness [Unknown]
  - Movement disorder [Unknown]
  - Dysphonia [Unknown]
  - Dysstasia [Unknown]
  - Disturbance in attention [Unknown]
  - Confusional state [Unknown]
  - Depression [Recovered/Resolved]
  - Headache [Unknown]
  - Memory impairment [Unknown]
